FAERS Safety Report 20646015 (Version 1)
Quarter: 2022Q1

REPORT INFORMATION
  Report Type: Other
  Country: CA (occurrence: CA)
  Receive Date: 20220329
  Receipt Date: 20220329
  Transmission Date: 20220424
  Serious: Yes (Hospitalization, Other)
  Sender: FDA-Public Use
  Company Number: CA-APOTEX-2022AP005121

PATIENT
  Age: 57 Year
  Sex: Male

DRUGS (13)
  1. RIVASTIGMINE [Suspect]
     Active Substance: RIVASTIGMINE
     Indication: Product used for unknown indication
     Dosage: UNK
     Route: 065
  2. OMALIZUMAB [Suspect]
     Active Substance: OMALIZUMAB
     Indication: Asthma
     Dosage: 225 MILLIGRAM
     Route: 058
  3. OMALIZUMAB [Suspect]
     Active Substance: OMALIZUMAB
     Dosage: 375 MILLIGRAM
     Route: 058
  4. OMALIZUMAB [Suspect]
     Active Substance: OMALIZUMAB
     Dosage: UNK
     Route: 058
  5. OMALIZUMAB [Suspect]
     Active Substance: OMALIZUMAB
     Dosage: 300 MILLIGRAM
     Route: 058
  6. OMALIZUMAB [Suspect]
     Active Substance: OMALIZUMAB
     Dosage: 150 MILLIGRAM
     Route: 065
  7. ALVESCO [Concomitant]
     Active Substance: CICLESONIDE
     Indication: Product used for unknown indication
     Dosage: UNK
     Route: 065
  8. BUDESONIDE\FORMOTEROL FUMARATE [Concomitant]
     Active Substance: BUDESONIDE\FORMOTEROL FUMARATE
     Indication: Product used for unknown indication
     Dosage: UNK
     Route: 065
  9. LIPITOR [Concomitant]
     Active Substance: ATORVASTATIN CALCIUM
     Indication: Product used for unknown indication
     Dosage: UNK
     Route: 065
  10. NASONEX [Concomitant]
     Active Substance: MOMETASONE FUROATE
     Indication: Product used for unknown indication
     Dosage: UNK
     Route: 065
  11. SINGULAIR [Concomitant]
     Active Substance: MONTELUKAST SODIUM
     Indication: Product used for unknown indication
     Dosage: UNK
     Route: 065
  12. ALBUTEROL SULFATE [Concomitant]
     Active Substance: ALBUTEROL SULFATE
     Indication: Product used for unknown indication
     Dosage: UNK
     Route: 065
  13. ZITHROMAX [Concomitant]
     Active Substance: AZITHROMYCIN DIHYDRATE
     Indication: Product used for unknown indication
     Dosage: UNK
     Route: 065

REACTIONS (32)
  - Arthritis [Not Recovered/Not Resolved]
  - Asthma [Not Recovered/Not Resolved]
  - Clavicle fracture [Not Recovered/Not Resolved]
  - Dizziness postural [Not Recovered/Not Resolved]
  - Dysphonia [Not Recovered/Not Resolved]
  - General physical health deterioration [Not Recovered/Not Resolved]
  - Hypersensitivity [Not Recovered/Not Resolved]
  - Hypotension [Not Recovered/Not Resolved]
  - Joint swelling [Not Recovered/Not Resolved]
  - Joint warmth [Not Recovered/Not Resolved]
  - Nasal congestion [Not Recovered/Not Resolved]
  - Nasal polyps [Not Recovered/Not Resolved]
  - Nasopharyngitis [Not Recovered/Not Resolved]
  - Osteoarthritis [Not Recovered/Not Resolved]
  - Paraesthesia [Not Recovered/Not Resolved]
  - Parkinson^s disease [Not Recovered/Not Resolved]
  - Photosensitivity reaction [Not Recovered/Not Resolved]
  - Product use issue [Not Recovered/Not Resolved]
  - Dyspnoea [Not Recovered/Not Resolved]
  - Productive cough [Not Recovered/Not Resolved]
  - Rhinitis allergic [Not Recovered/Not Resolved]
  - Speech disorder [Not Recovered/Not Resolved]
  - Sputum increased [Not Recovered/Not Resolved]
  - Temperature intolerance [Not Recovered/Not Resolved]
  - Hallucination [Not Recovered/Not Resolved]
  - Fall [Not Recovered/Not Resolved]
  - Insomnia [Not Recovered/Not Resolved]
  - Tremor [Not Recovered/Not Resolved]
  - Asthenia [Not Recovered/Not Resolved]
  - Dizziness [Not Recovered/Not Resolved]
  - Fatigue [Not Recovered/Not Resolved]
  - Weight decreased [Not Recovered/Not Resolved]
